FAERS Safety Report 8977636 (Version 4)
Quarter: 2013Q4

REPORT INFORMATION
  Report Type: Report from Study
  Country: JP (occurrence: JP)
  Receive Date: 20121220
  Receipt Date: 20131224
  Transmission Date: 20140711
  Serious: Yes (Death, Other)
  Sender: FDA-Public Use
  Company Number: JP-GILEAD-2012-0066660

PATIENT
  Age: 59 Year
  Sex: Female
  Weight: 56 kg

DRUGS (15)
  1. AMBRISENTAN [Suspect]
     Indication: PULMONARY ARTERIAL HYPERTENSION
     Dosage: 10MG PER DAY
     Route: 048
     Dates: start: 20121011, end: 20130709
  2. AMBRISENTAN [Suspect]
     Dosage: 7.5MG PER DAY
     Route: 048
     Dates: start: 20120511, end: 20121010
  3. AMBRISENTAN [Suspect]
     Dosage: 5MG PER DAY
     Route: 048
     Dates: start: 20110524, end: 20120510
  4. FLOLAN [Suspect]
     Indication: PULMONARY ARTERIAL HYPERTENSION
     Dosage: 9 NG, UNK
     Route: 042
     Dates: start: 20121024, end: 20130709
  5. ADCIRCA [Concomitant]
     Indication: PULMONARY ARTERIAL HYPERTENSION
     Dosage: 40MG PER DAY
     Route: 048
     Dates: start: 20121024, end: 20130709
  6. REVATIO [Concomitant]
     Indication: PULMONARY ARTERIAL HYPERTENSION
     Dosage: 20 MG, TID
     Route: 048
     Dates: end: 20130709
  7. PREDONINE                          /00016201/ [Concomitant]
     Route: 048
  8. DIART [Concomitant]
     Route: 048
  9. FUROSEMIDE [Concomitant]
     Route: 048
  10. MYSLEE [Concomitant]
     Route: 048
  11. JUVELA N [Concomitant]
     Route: 048
  12. MUCODYNE [Concomitant]
     Route: 048
     Dates: end: 20120605
  13. LOXONIN [Concomitant]
     Route: 048
     Dates: end: 20120403
  14. MUCOSTA [Concomitant]
     Indication: GASTRITIS PROPHYLAXIS
     Route: 048
     Dates: end: 20120605
  15. CELECOX [Concomitant]
     Route: 048
     Dates: start: 20120404

REACTIONS (6)
  - Disease progression [Fatal]
  - Haemorrhage [Recovered/Resolved]
  - Device related infection [Recovered/Resolved]
  - Blood creatinine increased [Not Recovered/Not Resolved]
  - Fluid retention [Recovering/Resolving]
  - Anaemia [Not Recovered/Not Resolved]
